FAERS Safety Report 24317358 (Version 2)
Quarter: 2024Q3

REPORT INFORMATION
  Report Type: Spontaneous
  Country: RU (occurrence: RU)
  Receive Date: 20240913
  Receipt Date: 20240920
  Transmission Date: 20241016
  Serious: Yes (Other)
  Sender: RANBAXY
  Company Number: RU-SUN PHARMACEUTICAL INDUSTRIES LTD-2024R1-467739

PATIENT
  Age: 27 Year
  Sex: Male

DRUGS (3)
  1. VALACYCLOVIR [Suspect]
     Active Substance: VALACYCLOVIR HYDROCHLORIDE
     Indication: Herpes virus infection
     Dosage: 1000 MILLIGRAM, QD
     Route: 065
     Dates: start: 20200128, end: 20200202
  2. PREDNISOLONE [Suspect]
     Active Substance: PREDNISOLONE
     Indication: Herpes virus infection
     Dosage: 60 MILLIGRAM
     Route: 065
  3. PREDNISOLONE [Suspect]
     Active Substance: PREDNISOLONE
     Dosage: 10 MILLIGRAM EVERY 3 DAYS
     Route: 065
     Dates: start: 20200125

REACTIONS (3)
  - Disease recurrence [Unknown]
  - Therapeutic response decreased [Unknown]
  - Headache [Recovered/Resolved]
